FAERS Safety Report 19725796 (Version 3)
Quarter: 2022Q4

REPORT INFORMATION
  Report Type: Report from Study
  Country: DE (occurrence: DE)
  Receive Date: 20210820
  Receipt Date: 20221004
  Transmission Date: 20230113
  Serious: Yes (Other)
  Sender: FDA-Public Use
  Company Number: DE-ABBVIE-21K-062-4046597-00

PATIENT
  Age: 62 Year
  Sex: Male

DRUGS (26)
  1. SKYRIZI [Suspect]
     Active Substance: RISANKIZUMAB-RZAA
     Indication: Psoriasis
     Route: 058
     Dates: start: 20191024, end: 20200506
  2. SKYRIZI [Suspect]
     Active Substance: RISANKIZUMAB-RZAA
     Route: 058
     Dates: start: 20210713
  3. CANDESARTAN [Concomitant]
     Active Substance: CANDESARTAN
     Indication: Hypertension
     Route: 048
     Dates: start: 20190701
  4. NEBIVOL [Concomitant]
     Indication: Atrial fibrillation
     Route: 048
     Dates: start: 20110101
  5. NEBIVOL [Concomitant]
     Indication: Atrial fibrillation
     Route: 048
     Dates: start: 20220403, end: 20220403
  6. MAGNESIUM [Concomitant]
     Active Substance: MAGNESIUM
     Indication: Muscle spasms
     Route: 048
     Dates: start: 20170101
  7. AMLODIPINE [Concomitant]
     Active Substance: AMLODIPINE BESYLATE
     Indication: Hypertension
     Route: 048
     Dates: start: 20160101, end: 20200510
  8. AMLODIPINE [Concomitant]
     Active Substance: AMLODIPINE BESYLATE
     Indication: Hypertension
     Route: 048
     Dates: start: 20200511, end: 20200531
  9. TORSEMIDE [Concomitant]
     Active Substance: TORSEMIDE
     Indication: Hypertension
     Route: 048
     Dates: start: 20190701
  10. ELIQUIS [Concomitant]
     Active Substance: APIXABAN
     Indication: Atrial fibrillation
     Route: 048
     Dates: start: 20161201
  11. ALLOPURINOL [Concomitant]
     Active Substance: ALLOPURINOL
     Indication: Hyperuricaemia
     Route: 048
     Dates: start: 20090101
  12. IODINE [Concomitant]
     Active Substance: IODINE
     Indication: Hypothyroidism
     Route: 048
     Dates: start: 20160601
  13. FOLIC ACID [Concomitant]
     Active Substance: FOLIC ACID
     Indication: Polyneuropathy
     Route: 048
     Dates: start: 20170901
  14. VITAMIN B12 [Concomitant]
     Active Substance: CYANOCOBALAMIN
     Indication: Polyneuropathy
     Route: 058
     Dates: start: 20170901
  15. ENSTILAR [Concomitant]
     Active Substance: BETAMETHASONE DIPROPIONATE\CALCIPOTRIENE HYDRATE
     Indication: Psoriasis
     Dosage: 50 G/G, FOAM
     Route: 061
     Dates: start: 20190501
  16. ENSTILAR [Concomitant]
     Active Substance: BETAMETHASONE DIPROPIONATE\CALCIPOTRIENE HYDRATE
     Indication: Psoriasis
     Dosage: 1 APPLICATION, FOAM
     Route: 061
     Dates: start: 20201101
  17. BETAMETHASONE DIPROPIONATE\CLOTRIMAZOLE [Concomitant]
     Active Substance: BETAMETHASONE DIPROPIONATE\CLOTRIMAZOLE
     Indication: Psoriasis
     Route: 061
     Dates: start: 20190801
  18. LUXERM [Concomitant]
     Indication: Actinic keratosis
     Dosage: TIME INTERVAL: 1 TOTAL
     Route: 061
     Dates: start: 20200416, end: 20200416
  19. LUXERM [Concomitant]
     Indication: Actinic keratosis
     Dosage: 160 MG/G
     Route: 061
     Dates: start: 20210718, end: 20210718
  20. LUXERM [Concomitant]
     Indication: Actinic keratosis
     Dosage: 160 MG/G
     Route: 061
     Dates: start: 20200808, end: 20200808
  21. Bepanthen [Concomitant]
     Indication: Rhinitis
     Dosage: NOSESALVE, 1 APPLICATION MAXIMUM TWICE DAILY
     Route: 061
     Dates: start: 20200213
  22. LERCANIDIPINE [Concomitant]
     Active Substance: LERCANIDIPINE
     Indication: Hypertension
     Route: 048
     Dates: start: 20210601, end: 20210622
  23. LERCANIDIPINE [Concomitant]
     Active Substance: LERCANIDIPINE
     Indication: Hypertension
     Route: 048
     Dates: start: 20210622
  24. LERCANIDIPINE [Concomitant]
     Active Substance: LERCANIDIPINE
     Indication: Hypertension
     Route: 048
     Dates: start: 20220521
  25. SPIRONOLACTONE [Concomitant]
     Active Substance: SPIRONOLACTONE
     Indication: Hypertension
     Route: 048
     Dates: start: 20210718
  26. SPIRONOLACTONE [Concomitant]
     Active Substance: SPIRONOLACTONE
     Indication: Hypertension
     Route: 048
     Dates: start: 20210707, end: 2021

REACTIONS (1)
  - Squamous cell carcinoma [Not Recovered/Not Resolved]

NARRATIVE: CASE EVENT DATE: 20210812
